FAERS Safety Report 15192233 (Version 1)
Quarter: 2018Q3

REPORT INFORMATION
  Report Type: Report from Study
  Country: US (occurrence: US)
  Receive Date: 20180724
  Receipt Date: 20180724
  Transmission Date: 20181010
  Serious: Yes (Hospitalization)
  Sender: FDA-Public Use
  Company Number: US-SHIRE-US201827337

PATIENT
  Sex: Female

DRUGS (1)
  1. GATTEX [Suspect]
     Active Substance: TEDUGLUTIDE\WATER
     Indication: MALABSORPTION
     Dosage: 3.8 MG, 1X/DAY:QD
     Route: 030
     Dates: start: 20171025, end: 20180712

REACTIONS (3)
  - Dehydration [Unknown]
  - Lung disorder [Unknown]
  - Electrolyte imbalance [Unknown]
